FAERS Safety Report 8354116 (Version 2)
Quarter: 2015Q2

REPORT INFORMATION
  Report Type: Report from Study
  Country: US (occurrence: US)
  Receive Date: 20120125
  Receipt Date: 20150626
  Transmission Date: 20150821
  Serious: Yes (Death)
  Sender: FDA-Public Use
  Company Number: US-ROCHE-1032976

PATIENT
  Sex: Male
  Weight: 59.93 kg

DRUGS (16)
  1. TOPROL XL [Concomitant]
     Active Substance: METOPROLOL SUCCINATE
     Route: 048
  2. MEGACE [Concomitant]
     Active Substance: MEGESTROL ACETATE
  3. ZOLOFT [Concomitant]
     Active Substance: SERTRALINE HYDROCHLORIDE
     Route: 048
  4. MINOCYCLINE HCL [Concomitant]
     Active Substance: MINOCYCLINE HYDROCHLORIDE
     Dosage: 25/100 MG
     Route: 048
  5. TARCEVA [Suspect]
     Active Substance: ERLOTINIB HYDROCHLORIDE
     Indication: MALIGNANT URINARY TRACT NEOPLASM
     Route: 048
  6. VALIUM [Concomitant]
     Active Substance: DIAZEPAM
     Route: 065
  7. RAZADYNE [Concomitant]
     Active Substance: GALANTAMINE HYDROBROMIDE
     Route: 048
  8. ARICEPT [Concomitant]
     Active Substance: DONEPEZIL HYDROCHLORIDE
     Route: 048
  9. TARCEVA [Suspect]
     Active Substance: ERLOTINIB HYDROCHLORIDE
     Indication: RENAL CANCER
  10. LEXAPRO [Concomitant]
     Active Substance: ESCITALOPRAM OXALATE
  11. DARBEPOETIN ALFA [Concomitant]
     Active Substance: DARBEPOETIN ALFA
  12. FLOMAX (UNITED STATES) [Concomitant]
     Route: 048
  13. AVASTIN [Suspect]
     Active Substance: BEVACIZUMAB
     Indication: RENAL CANCER
     Route: 065
     Dates: start: 20071206
  14. SINEMET [Concomitant]
     Active Substance: CARBIDOPA\LEVODOPA
     Dosage: 25/100 MG
     Route: 065
  15. AVASTIN [Suspect]
     Active Substance: BEVACIZUMAB
     Indication: MALIGNANT URINARY TRACT NEOPLASM
     Route: 065
  16. LIPITOR [Concomitant]
     Active Substance: ATORVASTATIN CALCIUM
     Route: 048

REACTIONS (9)
  - Insomnia [Recovering/Resolving]
  - Slow response to stimuli [Unknown]
  - Dementia [Unknown]
  - Nocturia [Unknown]
  - Depression [Recovering/Resolving]
  - Off label use [Unknown]
  - Death [Fatal]
  - Fatigue [Unknown]
  - Muscular weakness [Unknown]
